FAERS Safety Report 25951535 (Version 1)
Quarter: 2025Q4

REPORT INFORMATION
  Report Type: Spontaneous
  Country: AU (occurrence: AU)
  Receive Date: 20251023
  Receipt Date: 20251023
  Transmission Date: 20260118
  Serious: Yes (Hospitalization)
  Sender: LUPIN
  Company Number: AU-MLMSERVICE-20251006-PI663715-00153-7

PATIENT
  Age: 14 Year
  Sex: Female

DRUGS (2)
  1. FLUOXETINE [Suspect]
     Active Substance: FLUOXETINE HYDROCHLORIDE
     Indication: Major depression
     Dosage: 5 MILLIGRAM
     Route: 065
  2. FLUOXETINE [Suspect]
     Active Substance: FLUOXETINE HYDROCHLORIDE
     Dosage: 10 MILLIGRAM (INCREASED TO 10 MG AFTER 4 DAYS)
     Route: 065

REACTIONS (1)
  - Abdominal pain [Unknown]
